FAERS Safety Report 25733374 (Version 1)
Quarter: 2025Q3

REPORT INFORMATION
  Report Type: Spontaneous
  Country: US (occurrence: US)
  Receive Date: 20250828
  Receipt Date: 20250828
  Transmission Date: 20251021
  Serious: No
  Sender: LEO PHARM
  Company Number: US-LEO Pharma-382348

PATIENT
  Sex: Female

DRUGS (1)
  1. ADBRY [Suspect]
     Active Substance: TRALOKINUMAB-LDRM
     Indication: Product used for unknown indication
     Dates: start: 202402, end: 202403

REACTIONS (5)
  - Dry eye [Unknown]
  - Conjunctivitis [Unknown]
  - Urticaria [Unknown]
  - Urticaria [Unknown]
  - Vasodilatation [Unknown]

NARRATIVE: CASE EVENT DATE: 20240301
